FAERS Safety Report 6108312-0 (Version None)
Quarter: 2009Q1

REPORT INFORMATION
  Report Type: 
  Country: None (occurrence: None)
  Receive Date: 20090309
  Receipt Date: 20090223
  Transmission Date: 20090719
  Serious: Yes (Hospitalization, Other)
  Sender: FDA-Public Use
  Company Number: GB-ROCHE-616538

PATIENT
  Sex: Male
  Weight: 77 kg

DRUGS (3)
  1. MYCOPHENOLATE MOFETIL [Suspect]
     Route: 065
  2. TACROLIMUS [Suspect]
     Dosage: DOSAGE: START AT 0.1 MG/KG, LEVEL 9-14 MG/ML
     Route: 065
  3. BASILIXIMAB [Suspect]
     Dosage: ONLY DAY 0 AND 4
     Route: 065

REACTIONS (2)
  - ILL-DEFINED DISORDER [None]
  - UPPER AIRWAY OBSTRUCTION [None]
